FAERS Safety Report 5619216-1 (Version None)
Quarter: 2008Q1

REPORT INFORMATION
  Report Type: 
  Country: None (occurrence: None)
  Receive Date: 20080205
  Receipt Date: 20080122
  Transmission Date: 20080703
  Serious: No
  Sender: FDA-Public Use
  Company Number: 02100-JPN-07-0012

PATIENT
  Age: 74 Year
  Sex: Male

DRUGS (5)
  1. PLETAL [Suspect]
     Indication: CEREBRAL INFARCTION
     Dosage: 100 MG, BID
     Route: 048
     Dates: start: 20050514, end: 20070109
  2. PLETAL [Suspect]
     Indication: CEREBRAL INFARCTION
     Dosage: 81 MG, QD
     Route: 048
     Dates: start: 20050514, end: 20070109
  3. CEROCRAL (FENPRODIL TARTRATE) TABLET [Concomitant]
  4. LANDSEN (CLONAZEPAM) GRANULE [Concomitant]
  5. NAPAGELN (FELBINAC) LOTION [Concomitant]

REACTIONS (2)
  - CARDIAC FAILURE [None]
  - PLEURAL EFFUSION [None]
